FAERS Safety Report 5030520-0 (Version None)
Quarter: 2006Q2

REPORT INFORMATION
  Report Type: 
  Country: None (occurrence: None)
  Receive Date: 20060614
  Receipt Date: 20060605
  Transmission Date: 20061013
  Serious: Yes (Death, Life-Threatening)
  Sender: FDA-Public Use
  Company Number: 2006JP000965

PATIENT
  Age: 43 Year
  Sex: Male

DRUGS (15)
  1. PROGRAF [Suspect]
     Indication: BONE MARROW TRANSPLANT
     Dosage: 2 MG, CONTINUOUS, IV DRIP; SEE IMAGE
     Route: 041
     Dates: start: 20050706, end: 20050802
  2. PROGRAF [Suspect]
     Indication: BONE MARROW TRANSPLANT
     Dosage: 2 MG, CONTINUOUS, IV DRIP; SEE IMAGE
     Route: 041
     Dates: start: 20050803, end: 20050813
  3. PROGRAF [Suspect]
     Indication: BONE MARROW TRANSPLANT
     Dosage: 2 MG, CONTINUOUS, IV DRIP; SEE IMAGE
     Route: 041
     Dates: end: 20051001
  4. PROGRAF [Suspect]
     Indication: BONE MARROW TRANSPLANT
     Dosage: 2 MG, CONTINUOUS, IV DRIP; SEE IMAGE
     Route: 041
     Dates: start: 20050814
  5. METHOTREXATE [Concomitant]
  6. ENDOXAN (CYLOPHOSPHAMIDE) [Concomitant]
  7. NEUPOGEN [Concomitant]
  8. TIENAM (IMIPENEM, CILASTATIN SODIUM) [Concomitant]
  9. DECADRON [Concomitant]
  10. PRODIF [Concomitant]
  11. ACYCRIL (ACICLOVIR SODIUM) [Concomitant]
  12. LEVOFLOXACIN [Concomitant]
  13. DIFLUCAN [Concomitant]
  14. VALTREX [Concomitant]
  15. MUCOSTA (REBAMIPIDE) [Concomitant]

REACTIONS (5)
  - DEPRESSED LEVEL OF CONSCIOUSNESS [None]
  - GRAFT VERSUS HOST DISEASE [None]
  - PNEUMONIA CYTOMEGALOVIRAL [None]
  - RESPIRATORY FAILURE [None]
  - TOXIC INDUCED ENCEPHALOPATHY [None]
